FAERS Safety Report 10263723 (Version 2)
Quarter: 2015Q1

REPORT INFORMATION
  Report Type: Spontaneous
  Country: US (occurrence: US)
  Receive Date: 20140627
  Receipt Date: 20150122
  Transmission Date: 20150720
  Serious: Yes (Hospitalization, Other)
  Sender: FDA-Public Use
  Company Number: US-GILEAD-2014-0106820

PATIENT
  Age: 68 Year
  Sex: Female

DRUGS (4)
  1. ADCIRCA [Concomitant]
     Active Substance: TADALAFIL
  2. LETAIRIS [Suspect]
     Active Substance: AMBRISENTAN
     Indication: PULMONARY ARTERIAL HYPERTENSION
  3. LETAIRIS [Suspect]
     Active Substance: AMBRISENTAN
     Indication: SYSTEMIC LUPUS ERYTHEMATOSUS
     Dosage: 10 MG, QD
     Route: 065
     Dates: start: 20071009
  4. OXYGEN. [Concomitant]
     Active Substance: OXYGEN

REACTIONS (5)
  - Oxygen supplementation [Unknown]
  - Pericardial effusion [Unknown]
  - Chest discomfort [Unknown]
  - Chest pain [Unknown]
  - Infection [Unknown]
